FAERS Safety Report 5289589-0 (Version None)
Quarter: 2007Q1

REPORT INFORMATION
  Report Type: 
  Country: None (occurrence: None)
  Receive Date: 20070118
  Receipt Date: 20060927
  Transmission Date: 20070707
  Serious: Yes (Other)
  Sender: FDA-Public Use
  Company Number: HQWYE113329AUG06

PATIENT
  Age: 65 Year
  Sex: Female
  Weight: 68.1 kg

DRUGS (3)
  1. ADVIL PM [Suspect]
     Indication: INSOMNIA
     Dosage: 1 CAPLET, 1 TIME, ORAL
     Route: 048
     Dates: start: 20060801, end: 20060801
  2. MELATONIN (MELATONIN) [Concomitant]
  3. UNSPECIFIED VITAMINS (UNSPECIFIED VITAMINS) [Concomitant]

REACTIONS (2)
  - DRUG INEFFECTIVE [None]
  - PSYCHOMOTOR HYPERACTIVITY [None]
